FAERS Safety Report 7790866-X (Version None)
Quarter: 2011Q3

REPORT INFORMATION
  Report Type: 
  Country: None (occurrence: None)
  Receive Date: 20110930
  Receipt Date: 20110921
  Transmission Date: 20111222
  Serious: Yes (Other)
  Sender: FDA-Public Use
  Company Number: US-ASTRAZENECA-2010SE41935

PATIENT
  Age: 660 Month
  Sex: Male

DRUGS (3)
  1. NEXIUM [Suspect]
     Indication: BARRETT'S OESOPHAGUS
     Route: 048
  2. CRESTOR [Suspect]
     Route: 048
  3. NEXIUM [Suspect]
     Indication: GASTROOESOPHAGEAL REFLUX DISEASE
     Route: 048

REACTIONS (7)
  - MYOCARDIAL INFARCTION [None]
  - CHEST PAIN [None]
  - GASTROOESOPHAGEAL REFLUX DISEASE [None]
  - ARTERIAL OCCLUSIVE DISEASE [None]
  - BARRETT'S OESOPHAGUS [None]
  - CARDIAC DISORDER [None]
  - WRONG TECHNIQUE IN DRUG USAGE PROCESS [None]
